FAERS Safety Report 8776032 (Version 2)
Quarter: 2013Q1

REPORT INFORMATION
  Report Type: Spontaneous
  Country: US (occurrence: US)
  Receive Date: 20120910
  Receipt Date: 20130313
  Transmission Date: 20140127
  Serious: No
  Sender: FDA-Public Use
  Company Number: US-TEVA-357809USA

PATIENT
  Age: 59 None
  Sex: Male
  Weight: 94.89 kg

DRUGS (5)
  1. NUVIGIL [Suspect]
     Indication: SLEEP APNOEA SYNDROME
     Dosage: ^50 AND 100 MG TABLETS^
     Route: 048
     Dates: start: 201009
  2. NUVIGIL [Suspect]
  3. NUVIGIL [Suspect]
  4. TYLENOL W/CODEINE NO. 4 [Concomitant]
     Route: 048
  5. NEURONTIN [Concomitant]
     Indication: NEURALGIA
     Route: 048
     Dates: end: 201208

REACTIONS (6)
  - Therapeutic response decreased [Not Recovered/Not Resolved]
  - Dizziness [Not Recovered/Not Resolved]
  - Disturbance in attention [Not Recovered/Not Resolved]
  - Feeling abnormal [Not Recovered/Not Resolved]
  - Drug effect delayed [Unknown]
  - Fatigue [Unknown]
